FAERS Safety Report 17926824 (Version 2)
Quarter: 2020Q2

REPORT INFORMATION
  Report Type: Spontaneous
  Country: ES (occurrence: ES)
  Receive Date: 20200623
  Receipt Date: 20200630
  Transmission Date: 20200714
  Serious: Yes (Death, Life-Threatening, Hospitalization, Other)
  Sender: FDA-Public Use
  Company Number: ES-BAUSCH-BL-2020-017435

PATIENT
  Age: 69 Year
  Sex: Male

DRUGS (26)
  1. CEFTAZIDIME. [Suspect]
     Active Substance: CEFTAZIDIME
     Indication: TRACHEOBRONCHITIS
     Route: 065
     Dates: start: 20180723
  2. TOBRAMYCIN. [Suspect]
     Active Substance: TOBRAMYCIN
     Indication: STENOTROPHOMONAS INFECTION
  3. TEICOPLANIN [Suspect]
     Active Substance: TEICOPLANIN
     Indication: DEVICE RELATED INFECTION
     Route: 065
     Dates: start: 20180712
  4. TOBRAMYCIN. [Suspect]
     Active Substance: TOBRAMYCIN
     Indication: TRACHEOBRONCHITIS
     Route: 055
     Dates: start: 20180723
  5. TIGECYCLINE. [Suspect]
     Active Substance: TIGECYCLINE
     Indication: ENTEROBACTER BACTERAEMIA
     Route: 065
     Dates: start: 20180813
  6. MEROPENEM. [Suspect]
     Active Substance: MEROPENEM
     Indication: POSTOPERATIVE WOUND INFECTION
     Route: 065
     Dates: start: 20180606
  7. MEROPENEM. [Suspect]
     Active Substance: MEROPENEM
     Indication: PSEUDOMONAS INFECTION
     Route: 065
     Dates: start: 20180612
  8. COTRIMOXAZOLE [Suspect]
     Active Substance: SULFAMETHOXAZOLE\TRIMETHOPRIM
     Indication: STENOTROPHOMONAS INFECTION
     Route: 042
     Dates: start: 20180723
  9. COTRIMOXAZOLE [Suspect]
     Active Substance: SULFAMETHOXAZOLE\TRIMETHOPRIM
     Indication: TRACHEOBRONCHITIS
  10. AMIKACIN. [Suspect]
     Active Substance: AMIKACIN
     Indication: TRACHEOBRONCHITIS
     Route: 065
     Dates: start: 20180627
  11. CIPROFLOXACIN. [Suspect]
     Active Substance: CIPROFLOXACIN
     Indication: PSEUDOMONAS INFECTION
     Route: 042
     Dates: start: 20180627
  12. FOSCARNET [Suspect]
     Active Substance: FOSCARNET
     Indication: CYTOMEGALOVIRUS COLITIS
     Route: 065
     Dates: start: 20180808
  13. MEROPENEM. [Suspect]
     Active Substance: MEROPENEM
     Indication: ENTEROBACTER BACTERAEMIA
     Route: 065
     Dates: start: 20180813
  14. MEROPENEM. [Suspect]
     Active Substance: MEROPENEM
     Indication: DEVICE RELATED INFECTION
  15. AMIKACIN. [Suspect]
     Active Substance: AMIKACIN
     Indication: PSEUDOMONAS INFECTION
     Route: 065
     Dates: start: 20180703
  16. METRONIDAZOLE. [Suspect]
     Active Substance: METRONIDAZOLE
     Indication: CLOSTRIDIUM DIFFICILE COLITIS
     Route: 042
     Dates: start: 20180707
  17. COLISTIN [Suspect]
     Active Substance: COLISTIN
     Indication: TRACHEOBRONCHITIS
     Route: 042
     Dates: start: 20180703
  18. VANCOMYCIN [Suspect]
     Active Substance: VANCOMYCIN
     Route: 048
     Dates: start: 20180707
  19. CEFEPIME [Suspect]
     Active Substance: CEFEPIME HYDROCHLORIDE
     Indication: PSEUDOMONAS INFECTION
     Route: 065
     Dates: start: 20180627
  20. TIGECYCLINE. [Suspect]
     Active Substance: TIGECYCLINE
     Indication: POSTOPERATIVE WOUND INFECTION
  21. GANCICLOVIR. [Suspect]
     Active Substance: GANCICLOVIR
     Indication: CYTOMEGALOVIRUS COLITIS
     Route: 065
     Dates: start: 20180808
  22. VANCOMYCIN [Suspect]
     Active Substance: VANCOMYCIN
     Indication: CLOSTRIDIUM DIFFICILE COLITIS
     Route: 054
     Dates: start: 20180707
  23. TIGECYCLINE. [Suspect]
     Active Substance: TIGECYCLINE
     Indication: KLEBSIELLA INFECTION
     Route: 065
     Dates: start: 20180815
  24. CEFTAZIDIME. [Suspect]
     Active Substance: CEFTAZIDIME
     Indication: STENOTROPHOMONAS INFECTION
  25. TEICOPLANIN [Suspect]
     Active Substance: TEICOPLANIN
     Indication: STREPTOCOCCAL BACTERAEMIA
  26. COLISTIN [Suspect]
     Active Substance: COLISTIN
     Indication: PSEUDOMONAS INFECTION

REACTIONS (8)
  - Multiple organ dysfunction syndrome [Fatal]
  - Thrombocytopenia [Unknown]
  - Atrial fibrillation [Fatal]
  - Septic shock [Fatal]
  - Hypotension [Unknown]
  - Leukopenia [Unknown]
  - Flavobacterium infection [Fatal]
  - Renal failure [Fatal]

NARRATIVE: CASE EVENT DATE: 20180823
